FAERS Safety Report 23159727 (Version 1)
Quarter: 2023Q4

REPORT INFORMATION
  Report Type: Report from Study
  Country: US (occurrence: US)
  Receive Date: 20231108
  Receipt Date: 20231108
  Transmission Date: 20240110
  Serious: Yes (Hospitalization, Other)
  Sender: FDA-Public Use
  Company Number: US-GILEAD-2023-0648854

PATIENT
  Age: 13 Year
  Sex: Male

DRUGS (33)
  1. AZTREONAM LYSINE [Suspect]
     Active Substance: AZTREONAM LYSINE
     Indication: Pseudomonas aeruginosa meningitis
     Dosage: 75 MG,TID,28 DAYS ON AND 28 DAYS OFF 84 VIALS
     Route: 055
  2. ZINC [Concomitant]
     Active Substance: PYRITHIONE ZINC\ZINC\ZINC CHLORIDE
     Dosage: UNK
  3. GABAPENTIN [Concomitant]
     Active Substance: GABAPENTIN
     Dosage: UNK
  4. AMBRISENTAN [Concomitant]
     Active Substance: AMBRISENTAN
     Dosage: UNK
  5. VENTAVIS [Concomitant]
     Active Substance: ILOPROST
     Dosage: UNK
  6. CYPROHEPTADINE [Concomitant]
     Active Substance: CYPROHEPTADINE
     Dosage: UNK
  7. ASPIRIN [Concomitant]
     Active Substance: ASPIRIN
     Dosage: UNK
  8. PREDNISONE [Concomitant]
     Active Substance: PREDNISONE
     Dosage: UNK
  9. MOXIFLOXACIN [Concomitant]
     Active Substance: MOXIFLOXACIN
     Dosage: UNK
  10. CLONIDINE [Concomitant]
     Active Substance: CLONIDINE
     Dosage: UNK
  11. BIFIDOBACTERIUM ANIMALIS LACTIS [Concomitant]
     Active Substance: BIFIDOBACTERIUM ANIMALIS LACTIS
     Dosage: UNK
  12. LEVOTHYROXINE SODIUM [Concomitant]
     Active Substance: LEVOTHYROXINE SODIUM
     Dosage: UNK
  13. LASIX [Concomitant]
     Active Substance: FUROSEMIDE
     Dosage: UNK
  14. DULERA [Concomitant]
     Active Substance: FORMOTEROL FUMARATE DIHYDRATE\MOMETASONE FUROATE
     Dosage: UNK
  15. KEPPRA [Concomitant]
     Active Substance: LEVETIRACETAM
     Dosage: UNK
  16. DIGOXIN [Concomitant]
     Active Substance: DIGOXIN
     Dosage: UNK
  17. CIPROFLOXACIN HYDROCHLORIDE [Concomitant]
     Active Substance: CIPROFLOXACIN HYDROCHLORIDE
     Dosage: UNK
  18. SENNA [Concomitant]
     Active Substance: SENNA LEAF\SENNOSIDES\SENNOSIDES A AND B
     Dosage: UNK
  19. DOCUSATE CALCIUM [Concomitant]
     Active Substance: DOCUSATE CALCIUM
     Dosage: UNK
  20. SODIUM CHLORIDE [Concomitant]
     Active Substance: SODIUM CHLORIDE
     Dosage: UNK
  21. IBUPROFEN [Concomitant]
     Active Substance: IBUPROFEN
     Dosage: UNK
  22. FLOVENT [Concomitant]
     Active Substance: FLUTICASONE PROPIONATE
     Dosage: UNK
  23. FUROSEMIDE [Concomitant]
     Active Substance: FUROSEMIDE
     Dosage: UNK
  24. CULTURELLE [Concomitant]
     Active Substance: LACTOBACILLUS RHAMNOSUS
     Dosage: UNK
  25. FLUTICASONE PROPIONATE [Concomitant]
     Active Substance: FLUTICASONE PROPIONATE
     Dosage: UNK
  26. ALBUTEROL SULFATE [Concomitant]
     Active Substance: ALBUTEROL SULFATE
     Dosage: UNK
  27. OXYGEN [Concomitant]
     Active Substance: OXYGEN
     Dosage: UNK
  28. REVATIO [Concomitant]
     Active Substance: SILDENAFIL CITRATE
     Dosage: UNK
  29. COCONUT OIL [Concomitant]
     Active Substance: COCONUT OIL
     Dosage: UNK
  30. VITAMINS [Concomitant]
     Active Substance: VITAMINS
     Dosage: UNK
  31. SODIUM FLUORIDE [Concomitant]
     Active Substance: SODIUM FLUORIDE
     Dosage: UNK
  32. LEVOTHYROXINE [Concomitant]
     Active Substance: LEVOTHYROXINE
     Dosage: UNK
  33. FLUTICASONE PROPIONATE [Concomitant]
     Active Substance: FLUTICASONE PROPIONATE
     Dosage: UNK

REACTIONS (4)
  - Dyspnoea [Unknown]
  - Mechanical ventilation [Not Recovered/Not Resolved]
  - Off label use [Unknown]
  - Drug delivery system issue [Unknown]
